FAERS Safety Report 5290249-0 (Version None)
Quarter: 2007Q2

REPORT INFORMATION
  Report Type: 
  Country: None (occurrence: None)
  Receive Date: 20070402
  Receipt Date: 20070323
  Transmission Date: 20071010
  Serious: Yes (Death)
  Sender: FDA-Public Use
  Company Number: S06-USA-04272-01

PATIENT
  Age: 18 Year
  Sex: Male

DRUGS (2)
  1. LEXAPRO [Suspect]
     Indication: DEPRESSION
     Dosage: 10 MG QD PO
     Route: 048
     Dates: start: 20030820, end: 20030917
  2. VICODIN [Concomitant]

REACTIONS (15)
  - AGITATION [None]
  - ANXIETY [None]
  - BLOOD ETHANOL INCREASED [None]
  - COMPLETED SUICIDE [None]
  - CONDITION AGGRAVATED [None]
  - DEPRESSION [None]
  - DRUG SCREEN POSITIVE [None]
  - GENERAL PHYSICAL HEALTH DETERIORATION [None]
  - GUN SHOT WOUND [None]
  - HEAD INJURY [None]
  - HOSTILITY [None]
  - INSOMNIA [None]
  - PATELLA FRACTURE [None]
  - SUICIDAL IDEATION [None]
  - WEIGHT DECREASED [None]
